FAERS Safety Report 6680716-7 (Version None)
Quarter: 2010Q2

REPORT INFORMATION
  Report Type: 
  Country: None (occurrence: None)
  Receive Date: 20100413
  Receipt Date: 20100413
  Transmission Date: 20101027
  Serious: Yes (Other)
  Sender: FDA-Public Use
  Company Number: None

PATIENT
  Age: 31 Year
  Sex: Female
  Weight: 93.8946 kg

DRUGS (2)
  1. SUDAFED 12 HOUR [Suspect]
     Indication: SINUS CONGESTION
     Dosage: AS LABELED ONE DOSE TAKEN PO
     Route: 048
     Dates: start: 20091101, end: 20091101
  2. PREPARATION H 0.25% WYETH [Suspect]
     Indication: HAEMORRHOIDS
     Dosage: AS LABELED ONE DOSE TAKEN RECTAL
     Route: 054
     Dates: start: 20100324, end: 20100324

REACTIONS (2)
  - DRUG EXPOSURE DURING PREGNANCY [None]
  - PREMATURE LABOUR [None]
